FAERS Safety Report 18326004 (Version 1)
Quarter: 2020Q3

REPORT INFORMATION
  Report Type: Spontaneous
  Country: DE (occurrence: DE)
  Receive Date: 20200929
  Receipt Date: 20200929
  Transmission Date: 20201103
  Serious: Yes (Hospitalization)
  Sender: FDA-Public Use
  Company Number: DE-MYLANLABS-2020M1081503

PATIENT
  Age: 62 Year
  Sex: Male

DRUGS (19)
  1. INDAPAMIDE/PERINDOPRIL [Suspect]
     Active Substance: INDAPAMIDE\PERINDOPRIL
     Indication: PRODUCT USED FOR UNKNOWN INDICATION
     Dosage: UNK UNK, QD(1.25|5 MG, 1?0?0?0, TABLETTEN)
  2. COLECALCIFEROL [Concomitant]
     Active Substance: CHOLECALCIFEROL
     Dosage: 1000 INTERNATIONAL UNIT, QD(1000 IE, 0?1?0?0, KAPSELN)
  3. GLYCEROLTRINITRAT [Concomitant]
     Active Substance: NITROGLYCERIN
     Dosage: 0.4 MILLIGRAM(0.4 MG, BEDARF, TABLETTEN)
  4. EZETIMIBE. [Suspect]
     Active Substance: EZETIMIBE
     Indication: PRODUCT USED FOR UNKNOWN INDICATION
     Dosage: 10 MILLIGRAM, QD(10 MG, 1?0?0?0, TABLETTEN)
  5. VERAPAMIL [Concomitant]
     Active Substance: VERAPAMIL HYDROCHLORIDE
     Dosage: 120 MILLIGRAM, BID(120 MG, 1?0?1?0, TABLETTEN)
  6. FORMOTEROL [Concomitant]
     Active Substance: FORMOTEROL
     Dosage: 12 MICROGRAM, QD(12 ?G, 1?0?0?0, INHALATIONSKAPSELN)
  7. LERCANIDIPINE [Suspect]
     Active Substance: LERCANIDIPINE
     Indication: PRODUCT USED FOR UNKNOWN INDICATION
     Dosage: 20 MILLIGRAM(20 MG, 0.5?0?0.5?0, TABLETTEN)
  8. INSULIN GLARGINE [Concomitant]
     Active Substance: INSULIN GLARGINE
     Dosage: UNK, NACH PLAN, INJEKTIONS?/INFUSIONSL?SUNG
     Route: 058
  9. ACETYLSALICYLIC ACID [Concomitant]
     Active Substance: ASPIRIN
     Dosage: 100 MILLIGRAM, QD(100 MG, 0?1?0?0, DOSIERAEROSOL)
  10. SPIRONOLACTONE. [Suspect]
     Active Substance: SPIRONOLACTONE
     Indication: PRODUCT USED FOR UNKNOWN INDICATION
     Dosage: 50 MILLIGRAM(50 MG, 0.5?0?0?0, TABLETTEN)
  11. ATORVASTATIN [Suspect]
     Active Substance: ATORVASTATIN
     Indication: PRODUCT USED FOR UNKNOWN INDICATION
     Dosage: 40 MILLIGRAM, QD(40 MG, 0?0?1?0, TABLETTEN)
  12. SALBUTAMOL [Concomitant]
     Active Substance: ALBUTEROL
     Dosage: 0.1 MILLIGRAM(0.1 MG, BEDARF, DOSIERAEROSOL)
  13. TAMSULOSIN [Concomitant]
     Active Substance: TAMSULOSIN
     Dosage: 0.4 MILLIGRAM,(0.4 MG, 1?0?0?0, RETARD?KAPSELN)
  14. PREGABALIN. [Concomitant]
     Active Substance: PREGABALIN
     Dosage: 75 MILLIGRAM, BID(75 MG, 1?0?1?0, KAPSELN)
  15. IBUPROFEN. [Suspect]
     Active Substance: IBUPROFEN
     Indication: PRODUCT USED FOR UNKNOWN INDICATION
     Dosage: 600 MILLIGRAM, QD(600 MG, 1?0?0?0)
  16. BUPROPION. [Concomitant]
     Active Substance: BUPROPION
     Dosage: 150 MILLIGRAM(150 MG, BEDARF, TABLETTEN)
  17. TORASEMIDE [Suspect]
     Active Substance: TORSEMIDE
     Indication: PRODUCT USED FOR UNKNOWN INDICATION
     Dosage: 20 MILLIGRAM, 20 MG, 2?2?0?0, TABLETTEN
  18. OMEPRAZOL                          /00661201/ [Concomitant]
     Active Substance: OMEPRAZOLE
     Dosage: 40 MILLIGRAM, QD(40 MG, 0?0?1?0, KAPSELN)
  19. ACTRAPID [Concomitant]
     Active Substance: INSULIN HUMAN
     Dosage: UNK, NACH PLAN, INJEKTIONS?/INFUSIONSL?SUNG
     Route: 058

REACTIONS (6)
  - Dyspnoea exertional [Recovering/Resolving]
  - Condition aggravated [Recovering/Resolving]
  - Rash [Recovering/Resolving]
  - Oedema peripheral [Recovering/Resolving]
  - Dry skin [Recovering/Resolving]
  - Acute kidney injury [Recovering/Resolving]
